FAERS Safety Report 13737759 (Version 1)
Quarter: 2017Q3

REPORT INFORMATION
  Report Type: Report from Study
  Country: US (occurrence: US)
  Receive Date: 20170710
  Receipt Date: 20170710
  Transmission Date: 20171127
  Serious: No
  Sender: FDA-Public Use
  Company Number: US-SAOL THERAPEUTICS-2016SAO00719

PATIENT
  Age: 57 Year
  Sex: Male

DRUGS (18)
  1. COMPOUNDED BACLOFEN [Suspect]
     Active Substance: BACLOFEN
     Dosage: 238.8 ?G, \DAY
     Route: 037
     Dates: start: 20150325, end: 20150625
  2. COMPOUNDED BACLOFEN [Suspect]
     Active Substance: BACLOFEN
     Dosage: 259.4 ?G, \DAY
     Route: 037
     Dates: start: 20150625, end: 20150915
  3. MORPHINE [Suspect]
     Active Substance: MORPHINE
     Dosage: 1.5906 MG, \DAY
     Route: 037
     Dates: start: 20150625, end: 20150915
  4. MORPHINE [Suspect]
     Active Substance: MORPHINE
     Dosage: 3.424 MG, \DAY
     Route: 037
     Dates: start: 20150915
  5. COMPOUNDED BACLOFEN [Suspect]
     Active Substance: BACLOFEN
     Dosage: 560 ?G, \DAY
     Route: 037
     Dates: start: 20150915
  6. BUPIVACAINE. [Suspect]
     Active Substance: BUPIVACAINE
     Dosage: 4.506 MG, \DAY
     Route: 037
     Dates: start: 20150303, end: 20150625
  7. BUPIVACAINE. [Suspect]
     Active Substance: BUPIVACAINE
     Dosage: 5.251 MG, \DAY
     Route: 037
     Dates: start: 20150915
  8. COMPOUNDED BACLOFEN [Suspect]
     Active Substance: BACLOFEN
     Dosage: 278.3 ?G, \DAY
     Route: 037
     Dates: start: 20150915
  9. BUPIVACAINE. [Suspect]
     Active Substance: BUPIVACAINE
     Dosage: 8.064 MG, \DAY
     Route: 037
     Dates: start: 20150303, end: 20150625
  10. BUPIVACAINE. [Suspect]
     Active Substance: BUPIVACAINE
     Dosage: 9.563 MG, \DAY
     Route: 037
     Dates: start: 20160625, end: 20150915
  11. MORPHINE [Suspect]
     Active Substance: MORPHINE
     Dosage: 1.706 MG, \DAY
     Route: 037
     Dates: start: 20150915
  12. MORPHINE [Suspect]
     Active Substance: MORPHINE
     Dosage: 2.621 MG, \DAY
     Route: 037
     Dates: start: 20150325, end: 20150625
  13. COMPOUNDED BACLOFEN [Suspect]
     Active Substance: BACLOFEN
     Dosage: 506.8 ?G, \DAY
     Route: 037
     Dates: start: 20150625, end: 20150915
  14. COMPOUNDED BACLOFEN [Suspect]
     Active Substance: BACLOFEN
     Dosage: 427.4 ?G, \DAY
     Route: 037
     Dates: start: 20150325, end: 20150625
  15. MORPHINE [Suspect]
     Active Substance: MORPHINE
     Dosage: 1.4644 MG, \DAY
     Route: 037
     Dates: start: 20150325, end: 20150625
  16. MORPHINE [Suspect]
     Active Substance: MORPHINE
     Dosage: 3.108 MG, \DAY
     Route: 037
     Dates: start: 20150625, end: 20150915
  17. BUPIVACAINE. [Suspect]
     Active Substance: BUPIVACAINE
     Dosage: 4.894 MG, \DAY
     Route: 037
     Dates: start: 20160625, end: 20150915
  18. BUPIVACAINE. [Suspect]
     Active Substance: BUPIVACAINE
     Dosage: 10.567 MG, \DAY
     Route: 037
     Dates: start: 20150915

REACTIONS (1)
  - Implant site pain [Recovered/Resolved]

NARRATIVE: CASE EVENT DATE: 20150625
